FAERS Safety Report 5314594-5 (Version None)
Quarter: 2007Q2

REPORT INFORMATION
  Report Type: 
  Country: None (occurrence: None)
  Receive Date: 20070425
  Receipt Date: 20070412
  Transmission Date: 20071010
  Serious: Yes (Other)
  Sender: FDA-Public Use
  Company Number: 2006BI015303

PATIENT
  Age: 68 Year
  Sex: Male

DRUGS (4)
  1. AVONEX [Suspect]
     Indication: MULTIPLE SCLEROSIS
     Dosage: 30 UG; QW; IM
     Route: 030
     Dates: start: 20051001
  2. FOSAMAX [Concomitant]
  3. VERAPAMIL [Concomitant]
  4. DITROPAN [Concomitant]

REACTIONS (1)
  - PROSTATE CANCER [None]
